FAERS Safety Report 25859202 (Version 1)
Quarter: 2025Q3

REPORT INFORMATION
  Report Type: Report from Study
  Country: US (occurrence: US)
  Receive Date: 20250929
  Receipt Date: 20250929
  Transmission Date: 20251021
  Serious: Yes (Hospitalization, Other)
  Sender: ABBVIE
  Company Number: US-ABBVIE-6478688

PATIENT
  Age: 53 Year
  Sex: Female

DRUGS (1)
  1. CREON [Suspect]
     Active Substance: PANCRELIPASE AMYLASE\PANCRELIPASE LIPASE\PANCRELIPASE PROTEASE
     Indication: Pancreatic failure
     Route: 048
     Dates: start: 20250729

REACTIONS (3)
  - Haematemesis [Unknown]
  - Pancreatic haemorrhage [Unknown]
  - Pancreatic stent placement [Unknown]

NARRATIVE: CASE EVENT DATE: 20250101
